FAERS Safety Report 25742732 (Version 1)
Quarter: 2025Q3

REPORT INFORMATION
  Report Type: Spontaneous
  Country: JP (occurrence: JP)
  Receive Date: 20250830
  Receipt Date: 20250830
  Transmission Date: 20251021
  Serious: Yes (Hospitalization, Other)
  Sender: NOVITIUM PHARMA
  Company Number: JP-NOVITIUMPHARMA-2025JPNVP02167

PATIENT
  Age: 50 Year
  Sex: Female

DRUGS (12)
  1. HYDROCORTISONE [Suspect]
     Active Substance: HYDROCORTISONE
     Indication: Drug withdrawal syndrome
     Route: 048
  2. HYDROCORTISONE [Suspect]
     Active Substance: HYDROCORTISONE
     Route: 048
  3. HYDROCORTISONE [Suspect]
     Active Substance: HYDROCORTISONE
     Route: 048
  4. CLOBETASOL [Concomitant]
     Active Substance: CLOBETASOL
     Route: 061
  5. CLOBETASOL [Concomitant]
     Active Substance: CLOBETASOL
  6. BETAMETHASONE [Concomitant]
     Active Substance: BETAMETHASONE
     Route: 061
  7. BETAMETHASONE [Concomitant]
     Active Substance: BETAMETHASONE
     Indication: Hypothalamic pituitary adrenal axis suppression
  8. BETAMETHASONE [Concomitant]
     Active Substance: BETAMETHASONE
  9. BETAMETHASONE [Concomitant]
     Active Substance: BETAMETHASONE
  10. Betamethasone-dipropionate/calcipotriol [Concomitant]
     Route: 061
  11. Betamethasone-dipropionate/calcipotriol [Concomitant]
  12. APREMILAST [Concomitant]
     Active Substance: APREMILAST
     Indication: Product used for unknown indication

REACTIONS (6)
  - Oral candidiasis [Unknown]
  - Condition aggravated [Unknown]
  - Osteoporotic fracture [Unknown]
  - Insomnia [Recovering/Resolving]
  - Glucose tolerance impaired [Unknown]
  - Neuropsychological symptoms [Unknown]
